FAERS Safety Report 5015812-3 (Version None)
Quarter: 2006Q2

REPORT INFORMATION
  Report Type: 
  Country: None (occurrence: None)
  Receive Date: 20060525
  Receipt Date: 20060515
  Transmission Date: 20061013
  Serious: Yes (Other)
  Sender: FDA-Public Use
  Company Number: GB-2006-011524

PATIENT
  Age: 44 Year
  Sex: Female
  Weight: 74 kg

DRUGS (2)
  1. ULTRAVIST 300 [Suspect]
     Indication: COMPUTERISED TOMOGRAM
     Dosage: INTRAVENOUS
     Route: 042
     Dates: start: 20060322, end: 20060322
  2. HYDRODROXYCHLOROQUINE [Concomitant]

REACTIONS (4)
  - ABDOMINAL PAIN UPPER [None]
  - DERMATITIS EXFOLIATIVE [None]
  - NAUSEA [None]
  - VOMITING [None]
